FAERS Safety Report 7478090-1 (Version None)
Quarter: 2011Q2

REPORT INFORMATION
  Report Type: 
  Country: None (occurrence: None)
  Receive Date: 20110511
  Receipt Date: 20110511
  Transmission Date: 20111010
  Serious: Yes (Life-Threatening, Hospitalization)
  Sender: FDA-Public Use
  Company Number: None

PATIENT
  Age: 86 Year
  Sex: Female

DRUGS (9)
  1. DABIGATRAN 150MG [Suspect]
     Indication: ATRIAL FIBRILLATION
     Dosage: 150MG BID PO
     Route: 048
     Dates: start: 20110209, end: 20110303
  2. LISINOPRIL [Concomitant]
  3. METOPROLOL SUCCINATE [Concomitant]
  4. SYNTHROID [Concomitant]
  5. LACTOBACILLUS [Concomitant]
  6. M.V.I. [Concomitant]
  7. ALENDRONATE SODIUM [Concomitant]
  8. CALCIUM/VITAMIN D [Concomitant]
  9. ACETAMINOPHEN [Concomitant]

REACTIONS (5)
  - MICROCYTIC ANAEMIA [None]
  - OXYGEN SATURATION DECREASED [None]
  - MENTAL STATUS CHANGES [None]
  - DEEP VEIN THROMBOSIS [None]
  - PULMONARY EMBOLISM [None]
